FAERS Safety Report 8244926-X (Version None)
Quarter: 2012Q1

REPORT INFORMATION
  Report Type: 
  Country: None (occurrence: None)
  Receive Date: 20120329
  Receipt Date: 20110915
  Transmission Date: 20120608
  Serious: No
  Sender: FDA-Public Use
  Company Number: US-MYLANLABS-2011S1019591

PATIENT
  Sex: Female
  Weight: 72.58 kg

DRUGS (1)
  1. FENTANYL-100 [Suspect]
     Indication: HEADACHE
     Dosage: CHANGES Q. 72 HOURS.
     Route: 062
     Dates: start: 20080101, end: 20090101

REACTIONS (3)
  - NAUSEA [None]
  - INAPPROPRIATE SCHEDULE OF DRUG ADMINISTRATION [None]
  - VOMITING [None]
